FAERS Safety Report 23748193 (Version 4)
Quarter: 2024Q4

REPORT INFORMATION
  Report Type: Spontaneous
  Country: US (occurrence: US)
  Receive Date: 20240416
  Receipt Date: 20241016
  Transmission Date: 20250114
  Serious: No
  Sender: SANOFI AVENTIS
  Company Number: US-SA-SAC20240408001184

PATIENT
  Age: 77 Year
  Sex: Female

DRUGS (1)
  1. DUPIXENT [Suspect]
     Active Substance: DUPILUMAB
     Indication: Neurodermatitis
     Dosage: 300 MG, QOW
     Route: 058
     Dates: start: 202404

REACTIONS (8)
  - Injection site pain [Unknown]
  - Injection site bruising [Unknown]
  - Product preparation error [Unknown]
  - Device use error [Unknown]
  - Pruritus [Not Recovered/Not Resolved]
  - Eye pruritus [Recovered/Resolved]
  - Cholecystectomy [Unknown]
  - Inappropriate schedule of product administration [Unknown]

NARRATIVE: CASE EVENT DATE: 20240101
